FAERS Safety Report 10788857 (Version 1)
Quarter: 2015Q1

REPORT INFORMATION
  Report Type: Spontaneous
  Country: US (occurrence: None)
  Receive Date: 20150211
  Receipt Date: 20150211
  Transmission Date: 20150721
  Serious: Yes (Other)
  Sender: FDA-Public Use
  Company Number: None

PATIENT
  Age: 26 Year
  Sex: Female
  Weight: 117.94 kg

DRUGS (1)
  1. BELVIQ [Suspect]
     Active Substance: LORCASERIN HYDROCHLORIDE
     Indication: WEIGHT DECREASED
     Dosage: 1 PILL TWICE DAILY
     Route: 048
     Dates: start: 20150106, end: 20150120

REACTIONS (7)
  - Fatigue [None]
  - Crying [None]
  - Asthenia [None]
  - Withdrawal syndrome [None]
  - Nausea [None]
  - Mood altered [None]
  - Pain [None]

NARRATIVE: CASE EVENT DATE: 20150123
